FAERS Safety Report 18587082 (Version 1)
Quarter: 2020Q4

REPORT INFORMATION
  Report Type: Spontaneous
  Country: IT (occurrence: IT)
  Receive Date: 20201207
  Receipt Date: 20201207
  Transmission Date: 20210114
  Serious: Yes (Other)
  Sender: FDA-Public Use
  Company Number: NVSC2020IT319342

PATIENT
  Age: 15 Year
  Sex: Female
  Weight: 71 kg

DRUGS (5)
  1. CETIRIZINE HYDROCHLORIDE. [Suspect]
     Active Substance: CETIRIZINE HYDROCHLORIDE
     Indication: PRODUCT USED FOR UNKNOWN INDICATION
     Dosage: UNK (TOOK 10 TABLETS)
     Route: 048
     Dates: start: 20201117, end: 20201117
  2. ASPRIN [Suspect]
     Active Substance: ASPIRIN
     Indication: PRODUCT USED FOR UNKNOWN INDICATION
     Dosage: 2 G
     Route: 048
     Dates: start: 20201117, end: 20201117
  3. PARACETAMOL [Suspect]
     Active Substance: ACETAMINOPHEN
     Indication: PRODUCT USED FOR UNKNOWN INDICATION
     Dosage: 1000 MG (12 TABLET) (EFFERVESCENT TABLET)
     Route: 048
     Dates: start: 20201117, end: 20201117
  4. IMODIUM [Suspect]
     Active Substance: LOPERAMIDE HYDROCHLORIDE
     Indication: PRODUCT USED FOR UNKNOWN INDICATION
     Dosage: UNK (UNSPECIFIED QUANTITY)
     Route: 048
     Dates: start: 20201117, end: 20201117
  5. ACETYLSALICYLIC ACID [Suspect]
     Active Substance: ASPIRIN
     Indication: PRODUCT USED FOR UNKNOWN INDICATION
     Dosage: 500 MG (TOOK 10 TABLETS)
     Route: 048
     Dates: start: 20201117, end: 20201117

REACTIONS (5)
  - Intentional overdose [Unknown]
  - Vomiting [Unknown]
  - Intentional self-injury [Unknown]
  - Toxicity to various agents [Unknown]
  - Sluggishness [Unknown]

NARRATIVE: CASE EVENT DATE: 20201117
